FAERS Safety Report 5186551-3 (Version None)
Quarter: 2006Q4

REPORT INFORMATION
  Report Type: 
  Country: None (occurrence: None)
  Receive Date: 20061213
  Receipt Date: 20061127
  Transmission Date: 20070319
  Serious: Yes (Hospitalization, Other)
  Sender: FDA-Public Use
  Company Number: US-2006-003115

PATIENT
  Age: 63 Year
  Sex: Female

DRUGS (2)
  1. BETASERON [Suspect]
     Indication: MULTIPLE SCLEROSIS
     Dosage: SUBCUTANEOUS; SEE IMAGE
     Route: 058
     Dates: start: 20001117, end: 20060920
  2. BETASERON [Suspect]
     Indication: MULTIPLE SCLEROSIS
     Dosage: SUBCUTANEOUS; SEE IMAGE
     Route: 058
     Dates: start: 20061009, end: 20061120

REACTIONS (9)
  - ANAEMIA [None]
  - ASTHENIA [None]
  - BODY TEMPERATURE INCREASED [None]
  - HAEMORRHAGE [None]
  - LOCALISED OEDEMA [None]
  - OEDEMA PERIPHERAL [None]
  - SENSATION OF HEAVINESS [None]
  - THROMBOSIS [None]
  - TREMOR [None]
